FAERS Safety Report 16752617 (Version 12)
Quarter: 2020Q4

REPORT INFORMATION
  Report Type: Report from Study
  Country: ZA (occurrence: ZA)
  Receive Date: 20190828
  Receipt Date: 20201118
  Transmission Date: 20210113
  Serious: Yes (Other)
  Sender: FDA-Public Use
  Company Number: PHHY2019ZA188346

PATIENT
  Sex: Female

DRUGS (9)
  1. COSENTYX [Suspect]
     Active Substance: SECUKINUMAB
     Indication: PSORIATIC ARTHROPATHY
     Dosage: 150 MG, QMO
     Route: 058
     Dates: start: 20190808
  2. COSENTYX [Suspect]
     Active Substance: SECUKINUMAB
     Dosage: UNK
     Route: 058
     Dates: start: 20191021
  3. COSENTYX [Suspect]
     Active Substance: SECUKINUMAB
     Dosage: 150 MG, Q4W
     Route: 065
  4. ARAVA [Suspect]
     Active Substance: LEFLUNOMIDE
     Indication: PRODUCT USED FOR UNKNOWN INDICATION
     Dosage: UNK
     Route: 065
  5. COSENTYX [Suspect]
     Active Substance: SECUKINUMAB
     Dosage: 150 MG, QMO
     Route: 058
  6. COSENTYX [Suspect]
     Active Substance: SECUKINUMAB
     Dosage: 150 MG, QMO
     Route: 058
  7. RHEUMALEF [Concomitant]
     Active Substance: LEFLUNOMIDE
     Indication: PRODUCT USED FOR UNKNOWN INDICATION
     Dosage: UNK
     Route: 065
  8. COSENTYX [Suspect]
     Active Substance: SECUKINUMAB
     Dosage: 150 MG, QMO
     Route: 058
     Dates: start: 20200925
  9. COSENTYX [Suspect]
     Active Substance: SECUKINUMAB
     Dosage: 150 MG, QMO
     Route: 058
     Dates: start: 20191121

REACTIONS (26)
  - Facial bones fracture [Recovering/Resolving]
  - Memory impairment [Unknown]
  - Pruritus [Unknown]
  - Wound sepsis [Recovered/Resolved]
  - Rib fracture [Recovering/Resolving]
  - Incorrect dose administered [Unknown]
  - Fatigue [Unknown]
  - Drug ineffective [Not Recovered/Not Resolved]
  - Vein rupture [Recovering/Resolving]
  - Product prescribing error [Unknown]
  - Arthritis infective [Unknown]
  - Impaired healing [Unknown]
  - Psoriasis [Not Recovered/Not Resolved]
  - Somnolence [Unknown]
  - Device leakage [Unknown]
  - Wound abscess [Recovered/Resolved]
  - Fall [Unknown]
  - Concussion [Recovering/Resolving]
  - Decreased immune responsiveness [Recovering/Resolving]
  - Pain in extremity [Unknown]
  - Skin ulcer [Unknown]
  - Contusion [Recovering/Resolving]
  - Musculoskeletal discomfort [Unknown]
  - Skin laceration [Recovering/Resolving]
  - Stress [Unknown]
  - Wrong technique in product usage process [Unknown]
